FAERS Safety Report 6424677-4 (Version None)
Quarter: 2009Q4

REPORT INFORMATION
  Report Type: 
  Country: None (occurrence: None)
  Receive Date: 20091102
  Receipt Date: 20091102
  Transmission Date: 20100525
  Serious: No
  Sender: FDA-Public Use
  Company Number: None

PATIENT
  Age: 55 Year

DRUGS (2)
  1. SULFAMETHOXAZOLE AND TRIMETHOPRIM [Suspect]
     Indication: FOLLICULITIS
     Dosage: 1 TAB BID PO
     Route: 048
     Dates: start: 20090423, end: 20090429
  2. SULFACETAMIDE SODIUM [Suspect]
     Dosage: 2 DROPS QID EYE
     Dates: start: 20090423, end: 20090429

REACTIONS (2)
  - PRURITUS GENERALISED [None]
  - RASH [None]
